FAERS Safety Report 14053157 (Version 1)
Quarter: 2017Q4

REPORT INFORMATION
  Report Type: Spontaneous
  Country: US (occurrence: US)
  Receive Date: 20171006
  Receipt Date: 20171006
  Transmission Date: 20180321
  Serious: No
  Sender: FDA-Public Use
  Company Number: US-JNJFOC-20170822272

PATIENT
  Age: 35 Year
  Sex: Male
  Weight: 53.98 kg

DRUGS (3)
  1. RISPERDOL [Concomitant]
     Indication: SCHIZOPHRENIA
     Route: 065
  2. INVEGA TRINZA [Suspect]
     Active Substance: PALIPERIDONE PALMITATE
     Indication: SCHIZOPHRENIA
     Route: 030
     Dates: start: 20151216
  3. SEROQUEL [Concomitant]
     Active Substance: QUETIAPINE FUMARATE
     Indication: SCHIZOPHRENIA
     Route: 065

REACTIONS (1)
  - Injection site nodule [Recovered/Resolved]

NARRATIVE: CASE EVENT DATE: 20160914
